FAERS Safety Report 18026773 (Version 1)
Quarter: 2020Q3

REPORT INFORMATION
  Report Type: Spontaneous
  Country: FR (occurrence: FR)
  Receive Date: 20200715
  Receipt Date: 20200715
  Transmission Date: 20201103
  Serious: Yes (Hospitalization)
  Sender: FDA-Public Use
  Company Number: FR-TEVA-2020-FR-1800171

PATIENT
  Age: 62 Year
  Sex: Female
  Weight: 73 kg

DRUGS (25)
  1. METHOTREXATE. [Suspect]
     Active Substance: METHOTREXATE
     Dosage: 61 MG
     Route: 042
     Dates: start: 20180905, end: 20180905
  2. ZOPHREN [Concomitant]
     Active Substance: ONDANSETRON
  3. CYCLOPHOSPHAMIDE. [Suspect]
     Active Substance: CYCLOPHOSPHAMIDE
     Dosage: 61  MG
     Route: 042
     Dates: start: 20180905, end: 20180905
  4. GRANOCYTE [Concomitant]
     Active Substance: LENOGRASTIM
  5. NEBIVOLOL. [Concomitant]
     Active Substance: NEBIVOLOL
  6. LANSOPRAZOLE. [Concomitant]
     Active Substance: LANSOPRAZOLE
  7. PERFALGAN [Concomitant]
     Active Substance: ACETAMINOPHEN
  8. CYTARABINE. [Suspect]
     Active Substance: CYTARABINE
     Indication: NON-HODGKIN^S LYMPHOMA
     Dosage: 920 MG
     Route: 042
     Dates: start: 20180905, end: 20180906
  9. BACTRIM [Concomitant]
     Active Substance: SULFAMETHOXAZOLE\TRIMETHOPRIM
  10. MACROGOLS [Concomitant]
     Active Substance: POLYETHYLENE GLYCOLS
  11. CYTARABINE. [Suspect]
     Active Substance: CYTARABINE
     Dosage: 135 MG
     Route: 042
     Dates: start: 20180905, end: 20180906
  12. LEDERFOLINE 25 MG, COMPRIME [Concomitant]
     Active Substance: LEUCOVORIN CALCIUM
  13. VALACICLOVIR [Concomitant]
     Active Substance: VALACYCLOVIR HYDROCHLORIDE
  14. SOLU?MEDROL [Concomitant]
     Active Substance: METHYLPREDNISOLONE SODIUM SUCCINATE
  15. RITUXIMAB ((MAMMIFERE/HAMSTER/CELLULES CHO)) [Suspect]
     Active Substance: RITUXIMAB
     Indication: NON-HODGKIN^S LYMPHOMA
     Dosage: 690 MG
     Route: 042
     Dates: start: 20180905, end: 20180905
  16. CYTARABINE. [Suspect]
     Active Substance: CYTARABINE
     Dosage: 61  MG
     Route: 042
     Dates: start: 20180905, end: 20180905
  17. ETOPOSIDE. [Suspect]
     Active Substance: ETOPOSIDE
     Indication: NON-HODGKIN^S LYMPHOMA
     Dosage: 135 MG
     Route: 042
     Dates: start: 20180905, end: 20180906
  18. ETOPOSIDE. [Suspect]
     Active Substance: ETOPOSIDE
     Dosage: 61  MG
     Route: 042
     Dates: start: 20180905, end: 20180905
  19. ETOPOSIDE. [Suspect]
     Active Substance: ETOPOSIDE
     Dosage: 920  MG
     Route: 042
     Dates: start: 20180905, end: 20180906
  20. METHOTREXATE. [Suspect]
     Active Substance: METHOTREXATE
     Indication: NON-HODGKIN^S LYMPHOMA
     Dosage: 920 MG
     Route: 042
     Dates: start: 20180905, end: 20180906
  21. CYTARABINE. [Suspect]
     Active Substance: CYTARABINE
     Dosage: 40 MG
     Route: 024
     Dates: start: 20180905, end: 20180905
  22. CYCLOPHOSPHAMIDE. [Suspect]
     Active Substance: CYCLOPHOSPHAMIDE
     Indication: NON-HODGKIN^S LYMPHOMA
     Dosage: 920 MG
     Route: 042
     Dates: start: 20180905, end: 20180906
  23. CYCLOPHOSPHAMIDE. [Suspect]
     Active Substance: CYCLOPHOSPHAMIDE
     Dosage: 135 MG
     Route: 042
     Dates: start: 20180905, end: 20180906
  24. METHOTREXATE. [Suspect]
     Active Substance: METHOTREXATE
     Dosage: 135 MG
     Route: 042
     Dates: start: 20180905, end: 20180906
  25. POLARAMINE [Concomitant]
     Active Substance: DEXCHLORPHENIRAMINE MALEATE

REACTIONS (3)
  - Vomiting [Recovered/Resolved]
  - Febrile neutropenia [Recovered/Resolved]
  - Pyrexia [Recovered/Resolved]

NARRATIVE: CASE EVENT DATE: 20180915
